FAERS Safety Report 23322311 (Version 1)
Quarter: 2023Q4

REPORT INFORMATION
  Report Type: Spontaneous
  Country: US (occurrence: None)
  Receive Date: 20231220
  Receipt Date: 20231220
  Transmission Date: 20240109
  Serious: No
  Sender: FDA-Public Use
  Company Number: None

PATIENT
  Sex: Male

DRUGS (4)
  1. OXBRYTA [Suspect]
     Active Substance: VOXELOTOR
     Indication: Haemoglobin C disease
     Dosage: FREQUENCY : DAILY;?
     Route: 048
     Dates: start: 202210
  2. OXBRYTA [Suspect]
     Active Substance: VOXELOTOR
     Indication: Sickle cell anaemia with crisis
  3. EXJADE [Concomitant]
     Active Substance: DEFERASIROX
  4. DEFERASIROX TAB [Concomitant]

REACTIONS (2)
  - Sickle cell anaemia with crisis [None]
  - Diarrhoea [None]
